FAERS Safety Report 9882050 (Version 1)
Quarter: 2014Q1

REPORT INFORMATION
  Report Type: Spontaneous
  Country: ES (occurrence: ES)
  Receive Date: 20140207
  Receipt Date: 20140207
  Transmission Date: 20141002
  Serious: Yes (Other)
  Sender: FDA-Public Use
  Company Number: PHHY2014ES013315

PATIENT
  Age: 38 Year
  Sex: Female

DRUGS (6)
  1. CICLOSPORIN [Suspect]
     Indication: IMMUNOSUPPRESSION
     Dosage: 5 MG/KG, PER DAY
  2. AZATHIOPRINE [Suspect]
     Indication: IMMUNOSUPPRESSION
     Dosage: 2 MG/KG, PER DAY
  3. PREDNISONE [Suspect]
     Indication: IMMUNOSUPPRESSION
     Dosage: 1 MG/KG, PERDAY
  4. FERROUS SULPHATE [Suspect]
     Dosage: 325 MG, TID
     Route: 048
  5. LABETALOL [Suspect]
     Indication: HYPERTENSION
  6. HYDRALAZINE [Suspect]
     Indication: HYPERTENSION

REACTIONS (8)
  - Foetal growth restriction [Unknown]
  - Lipase increased [Unknown]
  - Hypertension [Unknown]
  - Amylase increased [Unknown]
  - Haemoglobin decreased [Unknown]
  - Haematocrit decreased [Unknown]
  - Premature labour [Unknown]
  - Maternal exposure during pregnancy [Unknown]
